FAERS Safety Report 4618609-9 (Version None)
Quarter: 2005Q1

REPORT INFORMATION
  Report Type: 
  Country: None (occurrence: None)
  Receive Date: 20050323
  Receipt Date: 20050308
  Transmission Date: 20050727
  Serious: Yes (Hospitalization)
  Sender: FDA-Public Use
  Company Number: 2005-0008123

PATIENT
  Age: 50 Year
  Sex: Male

DRUGS (8)
  1. VIREAD [Suspect]
     Dosage: 300 MG, 1 IN 1 D, ORAL
     Route: 048
     Dates: start: 20041124, end: 20050214
  2. REYATAZ [Suspect]
     Dosage: 300 MG, 1 IN 1 D, ORAL
     Route: 048
  3. NORVIR [Concomitant]
  4. LAMIVUDINE [Concomitant]
  5. MIRTAZAPINE [Concomitant]
  6. OXAZEPAM [Concomitant]
  7. LOPERAMIDE MEPHA (LOPERAMIDE) [Concomitant]
  8. METOCLOPRAMIDE [Concomitant]

REACTIONS (7)
  - BLOOD CALCIUM DECREASED [None]
  - BLOOD GLUCOSE INCREASED [None]
  - BLOOD SODIUM DECREASED [None]
  - C-REACTIVE PROTEIN INCREASED [None]
  - NEPHRITIS INTERSTITIAL [None]
  - RENAL FAILURE ACUTE [None]
  - RENAL INTERSTITIAL FIBROSIS [None]
